FAERS Safety Report 6125674-9 (Version None)
Quarter: 2009Q1

REPORT INFORMATION
  Report Type: 
  Country: None (occurrence: None)
  Receive Date: 20090320
  Receipt Date: 20090312
  Transmission Date: 20090719
  Serious: Yes (Hospitalization)
  Sender: FDA-Public Use
  Company Number: JP-NOVOPROD-284231

PATIENT
  Sex: Female
  Weight: 53 kg

DRUGS (7)
  1. LEVEMIR [Suspect]
     Indication: TYPE 2 DIABETES MELLITUS
     Dosage: 8 IU, QD
     Route: 058
     Dates: start: 20081010, end: 20081128
  2. LEVEMIR [Suspect]
     Dosage: 8 U, QD
  3. NOVORAPID CHU FLEXPEN [Concomitant]
     Dosage: 2-4-2 IU/DAY
  4. VITANEURIN                         /02072701/ [Concomitant]
     Dosage: 100 MG, QD
     Route: 048
     Dates: start: 20070530, end: 20081128
  5. CINAL                              /00257901/ [Concomitant]
     Dosage: 200 MG, QD
     Route: 048
     Dates: start: 20080423, end: 20081128
  6. BENZALIN [Concomitant]
     Indication: INSOMNIA
     Dosage: 5 MG, QD
     Route: 048
     Dates: start: 20061227, end: 20081128
  7. SHAKUYAKUKANZOUTOU [Concomitant]
     Dosage: 7.5 G, QD
     Route: 048
     Dates: start: 20061004, end: 20081128

REACTIONS (2)
  - COLON CANCER [None]
  - INTESTINAL OBSTRUCTION [None]
